FAERS Safety Report 6717636-5 (Version None)
Quarter: 2010Q2

REPORT INFORMATION
  Report Type: 
  Country: None (occurrence: None)
  Receive Date: 20100510
  Receipt Date: 20100429
  Transmission Date: 20101027
  Serious: Yes (Hospitalization)
  Sender: FDA-Public Use
  Company Number: JP-ASTRAZENECA-2009SE01219

PATIENT
  Age: 90 Year
  Sex: Female

DRUGS (4)
  1. COKENZEN [Suspect]
     Indication: HYPERTENSION
     Dosage: 16/12.5; 1 DOSAGE FORM - DAILY.
     Route: 048
  2. ISOPTIN [Interacting]
     Indication: DRUG USE FOR UNKNOWN INDICATION
     Route: 048
  3. VASTAREL [Interacting]
     Indication: DRUG USE FOR UNKNOWN INDICATION
     Route: 048
  4. LEXOMIL [Interacting]
     Indication: DRUG USE FOR UNKNOWN INDICATION
     Route: 048

REACTIONS (6)
  - DRUG INTERACTION [None]
  - FALL [None]
  - HYPOTENSION [None]
  - MALAISE [None]
  - SPINAL COMPRESSION FRACTURE [None]
  - THORACIC VERTEBRAL FRACTURE [None]
